FAERS Safety Report 5095173-4 (Version None)
Quarter: 2006Q3

REPORT INFORMATION
  Report Type: 
  Country: None (occurrence: None)
  Receive Date: 20060731
  Receipt Date: 20060415
  Transmission Date: 20061208
  Serious: No
  Sender: FDA-Public Use
  Company Number: 2006PV012135

PATIENT
  Age: 70 Year
  Sex: Male
  Weight: 104.3273 kg

DRUGS (13)
  1. BYETTA [Suspect]
     Indication: DIABETES MELLITUS NON-INSULIN-DEPENDENT
     Dosage: 5 MCG;BID;SC
     Route: 058
     Dates: start: 20060328
  2. GLYBURIDE [Concomitant]
  3. METFORMIN [Concomitant]
  4. TEMAZEPAM [Concomitant]
  5. COUMADIN [Concomitant]
  6. ZOCOR ^MERCK FROSST^ [Concomitant]
  7. COZAAR [Concomitant]
  8. GEMFIBROZIL [Concomitant]
  9. DIOXIN [Concomitant]
  10. TOPROL-XL [Concomitant]
  11. NEXIUM [Concomitant]
  12. FOLIC ACID [Concomitant]
  13. TRAZODONE HCL [Concomitant]

REACTIONS (5)
  - FATIGUE [None]
  - HANGOVER [None]
  - INSOMNIA [None]
  - SOMNOLENCE [None]
  - TOOTH ABSCESS [None]
